FAERS Safety Report 23419264 (Version 2)
Quarter: 2024Q1

REPORT INFORMATION
  Report Type: Report from Study
  Country: US (occurrence: US)
  Receive Date: 20240118
  Receipt Date: 20240221
  Transmission Date: 20240410
  Serious: Yes (Other)
  Sender: FDA-Public Use
  Company Number: US-MALLINCKRODT-MNK202306260

PATIENT
  Sex: Male

DRUGS (1)
  1. CORTICOTROPIN [Suspect]
     Active Substance: CORTICOTROPIN
     Indication: Nephrotic syndrome
     Dosage: 80 UNITS
     Dates: start: 20200127

REACTIONS (9)
  - Diabetes mellitus [Not Recovered/Not Resolved]
  - Contusion [Unknown]
  - Fall [Unknown]
  - Pain in extremity [Unknown]
  - Clumsiness [Unknown]
  - Limb injury [Unknown]
  - Gait disturbance [Unknown]
  - Peripheral swelling [Recovering/Resolving]
  - Skin atrophy [Unknown]
